FAERS Safety Report 6289813-1 (Version None)
Quarter: 2009Q3

REPORT INFORMATION
  Report Type: 
  Country: None (occurrence: None)
  Receive Date: 20090730
  Receipt Date: 20080804
  Transmission Date: 20100115
  Serious: No
  Sender: FDA-Public Use
  Company Number: US-BRISTOL-MYERS SQUIBB COMPANY-14288641

PATIENT
  Age: 70 Year
  Sex: Male
  Weight: 91 kg

DRUGS (5)
  1. COUMADIN [Suspect]
     Dosage: STOPPED IN JUN-2008 UPON DISCHARGE 4MG/DAY INCREASED TO 5MG/DAY 21-JUL-2008: INCREASED TO 6MG/DAY
     Dates: start: 19970101
  2. DIGOXIN [Concomitant]
  3. PROPAFENONE HCL [Concomitant]
  4. LACTULOSE [Concomitant]
  5. PROPOXYPHENE HCL CAP [Concomitant]

REACTIONS (1)
  - INTERNATIONAL NORMALISED RATIO FLUCTUATION [None]
